FAERS Safety Report 6182548-5 (Version None)
Quarter: 2009Q2

REPORT INFORMATION
  Report Type: 
  Country: None (occurrence: None)
  Receive Date: 20090507
  Receipt Date: 20090428
  Transmission Date: 20091009
  Serious: Yes (Hospitalization)
  Sender: FDA-Public Use
  Company Number: FR-PFIZER INC-2009204272

PATIENT

DRUGS (8)
  1. TRIFLUCAN [Suspect]
     Indication: ORAL CANDIDIASIS
     Dosage: 50 MG, 2X/DAY
     Route: 048
     Dates: start: 20090330, end: 20090407
  2. PREVISCAN [Interacting]
     Indication: ATRIAL FIBRILLATION
     Dosage: 0.25 MG, 1X/DAY
     Route: 048
     Dates: end: 20090407
  3. BACTRIM DS [Interacting]
     Indication: URINARY TRACT INFECTION
     Dosage: 1 DF, 2X/DAY
     Route: 048
     Dates: start: 20090328, end: 20090407
  4. FLECAINE [Concomitant]
     Indication: ATRIAL FIBRILLATION
     Dosage: 100 MG, 2X/DAY
     Route: 048
     Dates: end: 20090407
  5. THERALENE [Concomitant]
     Indication: INSOMNIA
     Dosage: 20 GTT, 1X/DAY
     Route: 048
     Dates: end: 20090407
  6. LORAZEPAM [Concomitant]
     Indication: ANXIETY
     Dosage: 2.5 MG, 1X/DAY
     Route: 048
     Dates: end: 20090407
  7. STABLON [Concomitant]
     Indication: DEPRESSION
     Dosage: 12.5 MG, 2X/DAY
     Route: 048
     Dates: end: 20090407
  8. OROCAL [Concomitant]
     Indication: OSTEOPOROSIS
     Dosage: 500 MG, 2X/DAY
     Dates: end: 20090407

REACTIONS (4)
  - ABDOMINAL WALL HAEMATOMA [None]
  - ACCIDENTAL OVERDOSE [None]
  - ANAEMIA [None]
  - INTERNATIONAL NORMALISED RATIO INCREASED [None]
